FAERS Safety Report 5764966-X (Version None)
Quarter: 2008Q2

REPORT INFORMATION
  Report Type: 
  Country: None (occurrence: None)
  Receive Date: 20080611
  Receipt Date: 20080604
  Transmission Date: 20081010
  Serious: Yes (Hospitalization)
  Sender: FDA-Public Use
  Company Number: B0524179A

PATIENT
  Age: 73 Year
  Sex: Male

DRUGS (9)
  1. AMOXICILLIN + CLAVULANATE POTASSIUM [Suspect]
     Dates: start: 20080107, end: 20080118
  2. BLINDED TRIAL MEDICATION [Suspect]
     Route: 048
     Dates: start: 20080108
  3. PREDNISONE ACETATE [Concomitant]
     Dates: start: 20080107, end: 20080114
  4. POTASSIUM CHLORIDE [Concomitant]
     Dates: start: 20080108
  5. PANTOPRAZOLE SODIUM [Concomitant]
     Dates: start: 20080108
  6. TERBUTALINE SULFATE [Concomitant]
     Dates: start: 20080108, end: 20080131
  7. FUROSEMIDE [Concomitant]
     Dates: start: 20080107
  8. LEVOFLOXACIN [Concomitant]
     Dates: start: 20080121
  9. IPRATROPIUM BROMIDE [Concomitant]
     Dates: start: 20080109, end: 20080131

REACTIONS (4)
  - CHRONIC OBSTRUCTIVE PULMONARY DISEASE [None]
  - LEFT VENTRICULAR FAILURE [None]
  - LUNG INFECTION [None]
  - PYREXIA [None]
